FAERS Safety Report 12900348 (Version 1)
Quarter: 2016Q4

REPORT INFORMATION
  Report Type: Spontaneous
  Country: DK (occurrence: DK)
  Receive Date: 20161101
  Receipt Date: 20161101
  Transmission Date: 20170207
  Serious: Yes (Hospitalization)
  Sender: FDA-Public Use
  Company Number: PHHY2016DK146001

PATIENT
  Age: 31 Year
  Sex: Female

DRUGS (3)
  1. METRONIDAZOL ^DAK^ [Suspect]
     Active Substance: METRONIDAZOLE
     Indication: INFECTION PROPHYLAXIS
     Dosage: 500 MG, TID
     Route: 048
     Dates: start: 20160802, end: 20160807
  2. BIOCLAVID [Suspect]
     Active Substance: AMOXICILLIN\CLAVULANIC ACID
     Indication: WISDOM TEETH REMOVAL
     Dosage: 1 DF, TID, STYRKE: 500MG + 125MG
     Route: 048
     Dates: start: 20160802, end: 20160807
  3. METFORMIN [Concomitant]
     Active Substance: METFORMIN HYDROCHLORIDE
     Indication: POLYCYSTIC OVARIES
     Route: 065

REACTIONS (2)
  - Rash generalised [Unknown]
  - Leukocytosis [Unknown]

NARRATIVE: CASE EVENT DATE: 201608
